FAERS Safety Report 14740780 (Version 4)
Quarter: 2018Q2

REPORT INFORMATION
  Report Type: Report from Study
  Country: US (occurrence: US)
  Receive Date: 20180410
  Receipt Date: 20180426
  Transmission Date: 20180711
  Serious: No
  Sender: FDA-Public Use
  Company Number: PHEH2018US013763

PATIENT
  Age: 28 Year
  Sex: Female

DRUGS (1)
  1. COSENTYX [Suspect]
     Active Substance: SECUKINUMAB
     Indication: PSORIASIS
     Dosage: 300 MG, ONCE/SINGLE
     Route: 058
     Dates: start: 20180324

REACTIONS (5)
  - Skin fissures [Unknown]
  - Pain of skin [Unknown]
  - Pain in jaw [Unknown]
  - Dry skin [Unknown]
  - Joint stiffness [Not Recovered/Not Resolved]

NARRATIVE: CASE EVENT DATE: 20180327
